FAERS Safety Report 10922563 (Version 3)
Quarter: 2015Q2

REPORT INFORMATION
  Report Type: Spontaneous
  Country: US (occurrence: US)
  Receive Date: 20150317
  Receipt Date: 20150515
  Transmission Date: 20150821
  Serious: Yes (Other)
  Sender: FDA-Public Use
  Company Number: US-GILEAD-2015-0141888

PATIENT
  Age: 44 Year
  Sex: Female

DRUGS (4)
  1. XANAX [Concomitant]
     Active Substance: ALPRAZOLAM
     Dosage: UNK
     Route: 065
  2. HARVONI [Suspect]
     Active Substance: LEDIPASVIR\SOFOSBUVIR
     Indication: HEPATITIS C
     Dosage: UNK
     Route: 065
     Dates: start: 20150228, end: 20150422
  3. NORETHINDRONE                      /00044901/ [Concomitant]
     Active Substance: NORETHINDRONE
     Dosage: UNK
     Route: 065
  4. ADDERALL [Concomitant]
     Active Substance: AMPHETAMINE ASPARTATE\AMPHETAMINE SULFATE\DEXTROAMPHETAMINE SACCHARATE\DEXTROAMPHETAMINE SULFATE
     Dosage: UNK
     Route: 065

REACTIONS (7)
  - Staphylococcal infection [Recovered/Resolved]
  - Skin lesion [Recovered/Resolved]
  - Burning sensation [Recovered/Resolved]
  - Dermatitis bullous [Recovered/Resolved]
  - Herpes simplex [Recovered/Resolved]
  - Rash [Recovered/Resolved]
  - Swollen tongue [Unknown]

NARRATIVE: CASE EVENT DATE: 20150307
